FAERS Safety Report 6871751-4 (Version None)
Quarter: 2010Q3

REPORT INFORMATION
  Report Type: 
  Country: None (occurrence: None)
  Receive Date: 20100723
  Receipt Date: 20100712
  Transmission Date: 20110219
  Serious: Yes (Other)
  Sender: FDA-Public Use
  Company Number: A0871734A

PATIENT
  Age: 27 Year
  Sex: Male

DRUGS (1)
  1. LAMICTAL [Suspect]

REACTIONS (2)
  - COMA [None]
  - DRUG TOXICITY [None]
